FAERS Safety Report 7929128-6 (Version None)
Quarter: 2011Q4

REPORT INFORMATION
  Report Type: 
  Country: None (occurrence: None)
  Receive Date: 20111119
  Receipt Date: 20111107
  Transmission Date: 20120403
  Serious: Yes (Other)
  Sender: FDA-Public Use
  Company Number: US-ELI_LILLY_AND_COMPANY-US201011005666

PATIENT
  Sex: Female

DRUGS (13)
  1. TOPROL-XL [Concomitant]
  2. CALCIUM +VIT D [Concomitant]
  3. FORTEO [Suspect]
     Dosage: 20 UG, QD
     Route: 065
  4. NORVASC [Concomitant]
  5. VESICARE [Concomitant]
  6. LIPITOR [Concomitant]
  7. IMIPRAMINE [Concomitant]
  8. CENTRUM [Concomitant]
  9. FORTEO [Suspect]
     Indication: OSTEOPOROSIS
     Dosage: 20 UG, DAILY (1/D)
  10. PLAVIX [Concomitant]
  11. ISOSORBIDE DINITRATE [Concomitant]
  12. ASPIRIN [Concomitant]
  13. TYLENOL (CAPLET) [Concomitant]

REACTIONS (11)
  - PALPITATIONS [None]
  - MUSCLE SPASMS [None]
  - ASTHENIA [None]
  - SPINAL FRACTURE [None]
  - BODY HEIGHT DECREASED [None]
  - OFF LABEL USE [None]
  - GASTRIC DISORDER [None]
  - CONSTIPATION [None]
  - DIZZINESS [None]
  - BLOOD PRESSURE INCREASED [None]
  - PELVIC FRACTURE [None]
